FAERS Safety Report 6975808-9 (Version None)
Quarter: 2010Q3

REPORT INFORMATION
  Report Type: 
  Country: None (occurrence: None)
  Receive Date: 20100910
  Receipt Date: 20100831
  Transmission Date: 20110219
  Serious: Yes (Hospitalization)
  Sender: FDA-Public Use
  Company Number: JP-SHIRE-SPV1-2010-00879

PATIENT
  Sex: Female

DRUGS (23)
  1. LANTHANUM CARBONATE [Suspect]
     Indication: HYPERPHOSPHATAEMIA
     Route: 048
     Dates: start: 20090615, end: 20090814
  2. LANTHANUM CARBONATE [Suspect]
     Dosage: 1500 MG, 1X/DAY:QD
     Route: 048
     Dates: start: 20090814, end: 20091127
  3. LANTHANUM CARBONATE [Suspect]
     Dosage: 1750 MG, 1X/DAY:QD
     Route: 048
     Dates: start: 20091127, end: 20091211
  4. LANTHANUM CARBONATE [Suspect]
     Dosage: 2000 MG, 1X/DAY:QD
     Route: 048
     Dates: start: 20091211
  5. RENAGEL [Concomitant]
     Indication: HYPERPHOSPHATAEMIA
     Dosage: 750 MG, UNKNOWN
     Route: 048
     Dates: start: 20080717, end: 20081008
  6. RENAGEL [Concomitant]
     Dosage: 1000 MG, UNKNOWN
     Route: 048
     Dates: start: 20081009, end: 20090128
  7. RENAGEL [Concomitant]
     Dosage: 1500 MG, UNKNOWN
     Route: 048
     Dates: start: 20090129, end: 20090310
  8. RENAGEL [Concomitant]
     Dosage: 3000 MG, UNKNOWN
     Route: 048
     Dates: start: 20090311, end: 20090416
  9. CALCIUM CARBONATE [Concomitant]
     Indication: HYPERPHOSPHATAEMIA
     Dates: start: 20090424, end: 20090731
  10. CALCIUM CARBONATE [Concomitant]
     Route: 048
     Dates: start: 20090731, end: 20090814
  11. ALFAROL [Concomitant]
     Dosage: UNK, UNK
     Route: 048
     Dates: start: 20091016, end: 20091113
  12. ALFAROL [Concomitant]
     Route: 048
     Dates: start: 20091113, end: 20091211
  13. ALFAROL [Concomitant]
     Route: 048
     Dates: start: 20091211
  14. CINACALCET HYDROCHLORIDE [Concomitant]
     Indication: HYPERPARATHYROIDISM SECONDARY
     Dates: start: 20090325, end: 20090619
  15. CINACALCET HYDROCHLORIDE [Concomitant]
     Route: 048
     Dates: start: 20090619, end: 20090918
  16. CINACALCET HYDROCHLORIDE [Concomitant]
     Route: 048
     Dates: start: 20090918, end: 20091211
  17. CINACALCET HYDROCHLORIDE [Concomitant]
     Route: 048
     Dates: start: 20091211
  18. VESICARE [Concomitant]
     Indication: POLLAKIURIA
     Route: 048
  19. HERBESSER R [Concomitant]
     Route: 048
  20. GASMOTIN [Concomitant]
     Route: 048
  21. DROXIDOPA [Concomitant]
     Indication: BLOOD PRESSURE DECREASED
     Route: 048
  22. WARFARIN [Concomitant]
     Route: 048
  23. ITRIZOLE [Concomitant]
     Indication: TINEA INFECTION
     Route: 048
     Dates: start: 20090615

REACTIONS (2)
  - CONDITION AGGRAVATED [None]
  - HYPERPARATHYROIDISM SECONDARY [None]
